FAERS Safety Report 15853799 (Version 1)
Quarter: 2019Q1

REPORT INFORMATION
  Report Type: Spontaneous
  Country: US (occurrence: US)
  Receive Date: 20190122
  Receipt Date: 20190122
  Transmission Date: 20190417
  Serious: No
  Sender: FDA-Public Use
  Company Number: US-PFIZER INC-2019028292

PATIENT
  Age: 61 Year
  Sex: Female
  Weight: 92.8 kg

DRUGS (1)
  1. XELJANZ XR [Suspect]
     Active Substance: TOFACITINIB CITRATE
     Indication: PSORIATIC ARTHROPATHY
     Dosage: 11 MG, 1X/DAY (EVERY MORNING)
     Route: 048

REACTIONS (2)
  - Bronchitis [Recovering/Resolving]
  - Pain [Not Recovered/Not Resolved]
